FAERS Safety Report 8105790-2 (Version None)
Quarter: 2012Q1

REPORT INFORMATION
  Report Type: 
  Country: None (occurrence: None)
  Receive Date: 20120201
  Receipt Date: 20120127
  Transmission Date: 20120608
  Serious: Yes (Life-Threatening, Hospitalization, Other)
  Sender: FDA-Public Use
  Company Number: US-ASTRAZENECA-2012SE06261

PATIENT
  Age: 43 Year
  Sex: Female

DRUGS (4)
  1. LAMICTAL [Suspect]
     Route: 065
  2. KLONOPIN [Suspect]
     Route: 065
  3. VALTRIX [Suspect]
     Route: 065
  4. SEROQUEL [Suspect]
     Indication: BIPOLAR I DISORDER
     Route: 048
     Dates: start: 20080101

REACTIONS (2)
  - DRUG DOSE OMISSION [None]
  - SUICIDE ATTEMPT [None]
